FAERS Safety Report 9602349 (Version 1)
Quarter: 2013Q4

REPORT INFORMATION
  Report Type: Spontaneous
  Country: US (occurrence: US)
  Receive Date: 20131007
  Receipt Date: 20131007
  Transmission Date: 20140711
  Serious: No
  Sender: FDA-Public Use
  Company Number: US-GLAXOSMITHKLINE-A1034905A

PATIENT
  Age: 51 Year
  Sex: Female

DRUGS (12)
  1. BENLYSTA [Suspect]
     Indication: SYSTEMIC LUPUS ERYTHEMATOSUS
     Dosage: 15U EVERY TWO WEEKS
     Route: 042
     Dates: start: 20130723
  2. STEROID [Suspect]
     Indication: PRODUCT USED FOR UNKNOWN INDICATION
     Route: 042
  3. SPIRONOLACTONE [Concomitant]
  4. FENTANYL [Concomitant]
  5. BYSTOLIC [Concomitant]
  6. LEVOTHYROXINE [Concomitant]
  7. LUNESTA [Concomitant]
  8. PREDNISONE [Concomitant]
  9. CYMBALTA [Concomitant]
  10. VITAMIN D3 [Concomitant]
  11. MYCOPHENOLATE [Concomitant]
  12. ASPIRIN [Concomitant]

REACTIONS (10)
  - Rhinorrhoea [Not Recovered/Not Resolved]
  - Oropharyngeal pain [Not Recovered/Not Resolved]
  - Dyspnoea [Not Recovered/Not Resolved]
  - Abdominal pain upper [Unknown]
  - Pain in extremity [Unknown]
  - Cough [Recovered/Resolved]
  - Insomnia [Unknown]
  - Pollakiuria [Unknown]
  - Fatigue [Not Recovered/Not Resolved]
  - Restless legs syndrome [Recovered/Resolved]
